FAERS Safety Report 8094192-3 (Version None)
Quarter: 2012Q1

REPORT INFORMATION
  Report Type: 
  Country: None (occurrence: None)
  Receive Date: 20120130
  Receipt Date: 20120130
  Transmission Date: 20120608
  Serious: Yes (Other)
  Sender: FDA-Public Use
  Company Number: None

PATIENT
  Age: 47 Year
  Sex: Female
  Weight: 56.699 kg

DRUGS (2)
  1. SULFAMETHOXAZOLE/TRIMETHOPRIM- O [Concomitant]
     Indication: STAPHYLOCOCCAL INFECTION
     Dosage: 800 MG
     Route: 048
     Dates: start: 20120124, end: 20120128
  2. CEPHALEXIN [Suspect]
     Indication: STAPHYLOCOCCAL INFECTION
     Dosage: 500 MG
     Route: 048
     Dates: start: 20120124, end: 20120128

REACTIONS (10)
  - FUNGAL INFECTION [None]
  - HAEMORRHOIDS [None]
  - BEDRIDDEN [None]
  - MUSCLE TIGHTNESS [None]
  - ARTHRALGIA [None]
  - CRYING [None]
  - OVERDOSE [None]
  - FEELING ABNORMAL [None]
  - HEADACHE [None]
  - BACK PAIN [None]
